FAERS Safety Report 7585628-2 (Version None)
Quarter: 2011Q3

REPORT INFORMATION
  Report Type: 
  Country: None (occurrence: None)
  Receive Date: 20110701
  Receipt Date: 20110627
  Transmission Date: 20111222
  Serious: Yes (Other)
  Sender: FDA-Public Use
  Company Number: ES-ABBOTT-11P-144-0733874-00

PATIENT
  Sex: Female

DRUGS (8)
  1. DIAZEPAM [Concomitant]
     Indication: PRODUCT USED FOR UNKNOWN INDICATION
  2. MAXALT [Concomitant]
     Indication: PRODUCT USED FOR UNKNOWN INDICATION
  3. RASILEZ [Concomitant]
     Indication: PRODUCT USED FOR UNKNOWN INDICATION
  4. PONTALSIC [Concomitant]
     Indication: PRODUCT USED FOR UNKNOWN INDICATION
  5. SOLGOL [Concomitant]
     Indication: PRODUCT USED FOR UNKNOWN INDICATION
  6. HUMIRA [Suspect]
     Indication: ANKYLOSING SPONDYLITIS
     Route: 058
     Dates: start: 20101101, end: 20110601
  7. MICARDIS HCT [Concomitant]
     Indication: PRODUCT USED FOR UNKNOWN INDICATION
  8. NEURONTIN [Concomitant]
     Indication: PRODUCT USED FOR UNKNOWN INDICATION

REACTIONS (1)
  - BLOOD TRIGLYCERIDES INCREASED [None]
